FAERS Safety Report 18121192 (Version 2)
Quarter: 2020Q3

REPORT INFORMATION
  Report Type: Report from Study
  Country: US (occurrence: US)
  Receive Date: 20200806
  Receipt Date: 20200907
  Transmission Date: 20201103
  Serious: Yes (Death, Hospitalization)
  Sender: FDA-Public Use
  Company Number: US-BAUSCH-BL-2020-022197

PATIENT
  Age: 66 Year
  Sex: Female
  Weight: 64.92 kg

DRUGS (2)
  1. XIFAXAN [Suspect]
     Active Substance: RIFAXIMIN
     Indication: PRODUCT USE IN UNAPPROVED INDICATION
  2. XIFAXAN [Suspect]
     Active Substance: RIFAXIMIN
     Indication: HYPERKALAEMIA
     Route: 048

REACTIONS (5)
  - Upper limb fracture [Unknown]
  - Death [Fatal]
  - Product use in unapproved indication [Unknown]
  - Wound [Unknown]
  - Fall [Unknown]

NARRATIVE: CASE EVENT DATE: 2020
